FAERS Safety Report 6226166-9 (Version None)
Quarter: 2009Q2

REPORT INFORMATION
  Report Type: 
  Country: None (occurrence: None)
  Receive Date: 20090612
  Receipt Date: 20090508
  Transmission Date: 20091009
  Serious: No
  Sender: FDA-Public Use
  Company Number: US-ABBOTT-09P-163-0572499-00

PATIENT
  Sex: Female
  Weight: 93.524 kg

DRUGS (3)
  1. HUMIRA [Suspect]
     Indication: PSORIASIS
     Dosage: DAY 1
     Dates: start: 20090320, end: 20090320
  2. HUMIRA [Suspect]
     Dosage: DAY 8
  3. YAZ [Concomitant]
     Indication: CONTRACEPTION
     Route: 048

REACTIONS (3)
  - COUGH [None]
  - NASOPHARYNGITIS [None]
  - SINUS HEADACHE [None]
